FAERS Safety Report 15392537 (Version 2)
Quarter: 2018Q4

REPORT INFORMATION
  Report Type: Spontaneous
  Country: JP (occurrence: JP)
  Receive Date: 20180917
  Receipt Date: 20181001
  Transmission Date: 20190204
  Serious: Yes (Other)
  Sender: FDA-Public Use
  Company Number: JP-SA-2018SA257438

PATIENT
  Age: 62 Year
  Sex: Male

DRUGS (8)
  1. OXALIPLATIN. [Suspect]
     Active Substance: OXALIPLATIN
     Indication: HEPATECTOMY
     Dosage: UNK UNK, QCY
     Route: 065
  2. BEVACIZUMAB. [Concomitant]
     Active Substance: BEVACIZUMAB
     Indication: HEPATECTOMY
     Dosage: UNK, QCY
     Route: 065
  3. SOX [Concomitant]
     Indication: METASTASES TO LIVER
     Dosage: UNK, QCY
  4. OXALIPLATIN. [Suspect]
     Active Substance: OXALIPLATIN
     Indication: METASTASIS
  5. BEVACIZUMAB. [Concomitant]
     Active Substance: BEVACIZUMAB
     Indication: ADENOCARCINOMA OF COLON
  6. OXALIPLATIN. [Suspect]
     Active Substance: OXALIPLATIN
     Indication: ADENOCARCINOMA OF COLON
  7. BEVACIZUMAB. [Concomitant]
     Active Substance: BEVACIZUMAB
     Indication: METASTASIS
  8. SOX [Concomitant]
     Indication: ADENOCARCINOMA OF COLON

REACTIONS (5)
  - Liver injury [Recovering/Resolving]
  - Venoocclusive liver disease [Recovering/Resolving]
  - Hepatic function abnormal [Recovering/Resolving]
  - Liver disorder [Recovering/Resolving]
  - Metastases to liver [Unknown]
